FAERS Safety Report 6434710-1 (Version None)
Quarter: 2009Q4

REPORT INFORMATION
  Report Type: 
  Country: None (occurrence: None)
  Receive Date: 20091109
  Receipt Date: 20091109
  Transmission Date: 20100525
  Serious: Yes (Disabling, Other)
  Sender: FDA-Public Use
  Company Number: None

PATIENT
  Age: 37 Year
  Sex: Female
  Weight: 160 kg

DRUGS (20)
  1. RISPERIDONE [Suspect]
     Indication: BIPOLAR DISORDER
     Dosage: 2 MG QAM PO
     Route: 048
     Dates: start: 20091020, end: 20091027
  2. OXANDROLONE [Suspect]
     Indication: MALNUTRITION
     Dosage: 2.5 MG BID PO
     Route: 048
     Dates: start: 20091021, end: 20091026
  3. ACETAMINOPHEN [Concomitant]
  4. ALBUTEROL [Concomitant]
  5. ASCORBIC ACID [Concomitant]
  6. ASPIRIN [Concomitant]
  7. DIPHENHYDRAMINE HCL [Concomitant]
  8. ENOXAPARIN [Concomitant]
  9. FERROUS SULFATE TAB [Concomitant]
  10. IPRATROPIUM [Concomitant]
  11. ARTIFICIAL TEARS [Concomitant]
  12. LORAZEPAM [Concomitant]
  13. METFORMIN HCL [Concomitant]
  14. MILK OF MAGNESIA TAB [Concomitant]
  15. SODIUM CHLORIDE [Concomitant]
  16. NYSTATIN [Concomitant]
  17. ONDANSETRON [Concomitant]
  18. VENLAFAXINE [Concomitant]
  19. HYDROCODONE BITARTRATE AND ACETAMINOPHEN [Concomitant]
  20. ZOLPIDEM [Concomitant]

REACTIONS (3)
  - ALANINE AMINOTRANSFERASE INCREASED [None]
  - ASPARTATE AMINOTRANSFERASE INCREASED [None]
  - DRUG INTERACTION [None]
